FAERS Safety Report 7690290-4 (Version None)
Quarter: 2011Q3

REPORT INFORMATION
  Report Type: 
  Country: None (occurrence: None)
  Receive Date: 20110818
  Receipt Date: 20110809
  Transmission Date: 20111222
  Serious: Yes (Other)
  Sender: FDA-Public Use
  Company Number: US-ELI_LILLY_AND_COMPANY-US201107003192

PATIENT
  Age: 68 Year
  Sex: Male
  Weight: 77.098 kg

DRUGS (13)
  1. CARBIDOPA AND LEVODOPA [Concomitant]
     Dosage: UNK
  2. LEXAPRO [Concomitant]
     Dosage: UNK
  3. FISH OIL [Concomitant]
     Dosage: UNK
  4. ASCORBIC ACID [Concomitant]
     Dosage: UNK
  5. HUMALOG [Suspect]
     Dosage: 5 U, PRN
     Dates: start: 20101001
  6. AMLODIPINE BESYLATE [Concomitant]
     Dosage: UNK
  7. VITAMIN E                            /001105/ [Concomitant]
     Dosage: UNK
  8. SAXAGLIPTIN [Concomitant]
     Dosage: 2.5 MG, QD
  9. ASPIRIN [Concomitant]
     Dosage: 81 MG, UNK
  10. LIPITOR [Concomitant]
     Dosage: UNK
  11. ALBUTEROL [Concomitant]
     Dosage: UNK
  12. VITAMIN D [Concomitant]
     Dosage: UNK
  13. LEVEMIR [Concomitant]
     Dosage: 18 U, EACH EVENING

REACTIONS (8)
  - PARKINSON'S DISEASE [None]
  - PANCREATIC DISORDER [None]
  - CHRONIC OBSTRUCTIVE PULMONARY DISEASE [None]
  - INCORRECT DOSE ADMINISTERED [None]
  - RENAL FAILURE [None]
  - DEMENTIA ALZHEIMER'S TYPE [None]
  - BLOOD PRESSURE INCREASED [None]
  - CATARACT [None]
